FAERS Safety Report 10409701 (Version 1)
Quarter: 2014Q3

REPORT INFORMATION
  Report Type: Spontaneous
  Country: CZ (occurrence: CZ)
  Receive Date: 20140826
  Receipt Date: 20140826
  Transmission Date: 20150326
  Serious: Yes (Disabling, Other)
  Sender: FDA-Public Use
  Company Number: CZ-TEVA-502381ISR

PATIENT
  Age: 63 Year
  Sex: Female

DRUGS (3)
  1. BREVITAX 6 MG/ML [Suspect]
     Active Substance: PACLITAXEL
     Indication: OVARIAN EPITHELIAL CANCER
     Route: 041
     Dates: start: 20140416, end: 20140730
  2. CYCLOPLATIN 450 [Concomitant]
     Active Substance: CARBOPLATIN
     Route: 042
  3. BETALOC SR 200 MG [Concomitant]

REACTIONS (2)
  - Activities of daily living impaired [Unknown]
  - Polyneuropathy [Unknown]

NARRATIVE: CASE EVENT DATE: 201404
